FAERS Safety Report 4583773-7 (Version None)
Quarter: 2005Q1

REPORT INFORMATION
  Report Type: 
  Country: None (occurrence: None)
  Receive Date: 20050216
  Receipt Date: 20050210
  Transmission Date: 20050727
  Serious: Yes (Hospitalization)
  Sender: FDA-Public Use
  Company Number: 200510527FR

PATIENT
  Age: 49 Year
  Sex: Female

DRUGS (2)
  1. CLAFORAN [Suspect]
     Indication: LUNG DISORDER
     Dates: start: 20041005, end: 20041007
  2. OFLOCET [Suspect]
     Indication: PNEUMONIA
     Route: 048
     Dates: start: 20041005

REACTIONS (1)
  - ASTHMA [None]
